FAERS Safety Report 6165899-X (Version None)
Quarter: 2009Q2

REPORT INFORMATION
  Report Type: 
  Country: None (occurrence: None)
  Receive Date: 20090423
  Receipt Date: 20090415
  Transmission Date: 20091009
  Serious: Yes (Death)
  Sender: FDA-Public Use
  Company Number: US-GILEAD-2009-0021486

PATIENT
  Sex: Female

DRUGS (13)
  1. LETAIRIS [Suspect]
     Indication: PULMONARY ARTERIAL HYPERTENSION
  2. FUROSEMIDE [Concomitant]
  3. LISINOPRIL [Concomitant]
  4. HYDROCHLOROTHIAZIDE [Concomitant]
  5. HYDRALAZINE HCL [Concomitant]
  6. TIAZAC [Concomitant]
  7. ALBUTEROL [Concomitant]
  8. ADVAIR HFA [Concomitant]
  9. LANTUS [Concomitant]
  10. NOVOLOG [Concomitant]
  11. GLUCOPHAGE [Concomitant]
  12. PREDNISONE [Concomitant]
  13. PEPCID [Concomitant]

REACTIONS (1)
  - DEATH [None]
